FAERS Safety Report 5789603-X (Version None)
Quarter: 2008Q2

REPORT INFORMATION
  Report Type: 
  Country: None (occurrence: None)
  Receive Date: 20080626
  Receipt Date: 20080620
  Transmission Date: 20081010
  Serious: Yes (Other)
  Sender: FDA-Public Use
  Company Number: US-PURDUE-USA_2008_0032329

PATIENT
  Age: 55 Year
  Sex: Female
  Weight: 91 kg

DRUGS (7)
  1. OXYCONTIN [Suspect]
     Indication: BACK PAIN
     Dosage: 15 MG, TID
  2. OXYCONTIN [Suspect]
     Dosage: 40 MG, TID
     Route: 048
     Dates: start: 20070901
  3. ACCUPRIL [Concomitant]
     Indication: HYPERTENSION
     Dosage: UNK MG, UNK
     Route: 048
  4. ATENOLOL [Concomitant]
     Indication: DRUG USE FOR UNKNOWN INDICATION
     Dosage: UNK MG, UNK
     Route: 048
  5. PROLAXIN [Concomitant]
     Indication: GASTROOESOPHAGEAL REFLUX DISEASE
     Dosage: UNK MG, UNK
     Route: 048
  6. LASIX [Concomitant]
     Indication: DRUG USE FOR UNKNOWN INDICATION
     Dosage: UNK MG, UNK
  7. VALIUM [Concomitant]
     Indication: SLEEP DISORDER
     Dosage: UNK MG, UNK
     Route: 048
     Dates: start: 20080201

REACTIONS (6)
  - DIZZINESS [None]
  - DYSPHAGIA [None]
  - HEADACHE [None]
  - NAUSEA [None]
  - OESOPHAGEAL STENOSIS [None]
  - VISION BLURRED [None]
